FAERS Safety Report 4445366-1 (Version None)
Quarter: 2004Q3

REPORT INFORMATION
  Report Type: 
  Country: None (occurrence: None)
  Receive Date: 20040729
  Receipt Date: 20030925
  Transmission Date: 20050211
  Serious: Yes (Death)
  Sender: FDA-Public Use
  Company Number: 2003UW12211

PATIENT
  Age: 31 Year

DRUGS (3)
  1. ELAVIL [Suspect]
  2. ETHYLENE GLYCOL [Suspect]
  3. ETHANOL [Suspect]

REACTIONS (1)
  - COMPLETED SUICIDE [None]
